FAERS Safety Report 7437969-7 (Version None)
Quarter: 2011Q2

REPORT INFORMATION
  Report Type: 
  Country: None (occurrence: None)
  Receive Date: 20110426
  Receipt Date: 20110412
  Transmission Date: 20111010
  Serious: Yes (Other)
  Sender: FDA-Public Use
  Company Number: JP-JNJFOC-20110406583

PATIENT

DRUGS (1)
  1. INFLIXIMAB, RECOMBINANT [Suspect]
     Indication: PUSTULAR PSORIASIS
     Route: 042

REACTIONS (5)
  - INTERVERTEBRAL DISCITIS [None]
  - SPONDYLITIS [None]
  - HERPES ZOSTER [None]
  - ANTIBIOTIC RESISTANT STAPHYLOCOCCUS TEST [None]
  - RETROPERITONEAL ABSCESS [None]
